FAERS Safety Report 5253656-8 (Version None)
Quarter: 2007Q1

REPORT INFORMATION
  Report Type: 
  Country: None (occurrence: None)
  Receive Date: 20070226
  Receipt Date: 20070212
  Transmission Date: 20070707
  Serious: Yes (Hospitalization)
  Sender: FDA-Public Use
  Company Number: 236205K06USA

PATIENT
  Age: 55 Year
  Sex: Female

DRUGS (3)
  1. REBIF [Suspect]
     Indication: MULTIPLE SCLEROSIS
     Dosage: 22 MCG, 3 IN 1 WEEKS, SUBCUTANEOUS
     Route: 058
     Dates: start: 20060831, end: 20060901
  2. TYLENOL (COTYLENOL) [Concomitant]
  3. PREDNISONE [Concomitant]

REACTIONS (5)
  - FALL [None]
  - HYPOAESTHESIA [None]
  - IMMOBILE [None]
  - URINARY TRACT INFECTION [None]
  - URINE ODOUR ABNORMAL [None]
